FAERS Safety Report 25612836 (Version 2)
Quarter: 2025Q4

REPORT INFORMATION
  Report Type: Spontaneous
  Country: BR (occurrence: BR)
  Receive Date: 20250728
  Receipt Date: 20251010
  Transmission Date: 20260118
  Serious: Yes (Other)
  Sender: MYLAN
  Company Number: BR-MYLANLABS-2025M1061624

PATIENT
  Age: 17 Year
  Sex: Male
  Weight: 100 kg

DRUGS (24)
  1. ZOLOFT [Interacting]
     Active Substance: SERTRALINE HYDROCHLORIDE
     Indication: Obsessive-compulsive disorder
     Dosage: 200 MILLIGRAM, AM (MORNING)
     Route: 065
     Dates: start: 202505
  2. ZOLOFT [Interacting]
     Active Substance: SERTRALINE HYDROCHLORIDE
     Indication: Anxiety
     Dosage: 200 MILLIGRAM, AM (MORNING)
     Dates: start: 202505
  3. ZOLOFT [Interacting]
     Active Substance: SERTRALINE HYDROCHLORIDE
     Indication: Autism spectrum disorder
     Dosage: 200 MILLIGRAM, AM (MORNING)
     Dates: start: 202505
  4. ZOLOFT [Interacting]
     Active Substance: SERTRALINE HYDROCHLORIDE
     Dosage: 200 MILLIGRAM, AM (MORNING)
     Route: 065
     Dates: start: 202505
  5. ZOLOFT [Interacting]
     Active Substance: SERTRALINE HYDROCHLORIDE
     Dosage: 300 MILLIGRAM, AM (MORNING)
     Route: 065
  6. ZOLOFT [Interacting]
     Active Substance: SERTRALINE HYDROCHLORIDE
     Dosage: 300 MILLIGRAM, AM (MORNING)
  7. ZOLOFT [Interacting]
     Active Substance: SERTRALINE HYDROCHLORIDE
     Dosage: 300 MILLIGRAM, AM (MORNING)
  8. ZOLOFT [Interacting]
     Active Substance: SERTRALINE HYDROCHLORIDE
     Dosage: 300 MILLIGRAM, AM (MORNING)
     Route: 065
  9. ZOLOFT [Interacting]
     Active Substance: SERTRALINE HYDROCHLORIDE
     Dosage: 300 MILLIGRAM, AM (MORNING)
     Route: 065
  10. ZOLOFT [Interacting]
     Active Substance: SERTRALINE HYDROCHLORIDE
     Dosage: 300 MILLIGRAM, AM (MORNING)
     Route: 065
  11. ZOLOFT [Interacting]
     Active Substance: SERTRALINE HYDROCHLORIDE
     Dosage: 300 MILLIGRAM, AM (MORNING)
  12. ZOLOFT [Interacting]
     Active Substance: SERTRALINE HYDROCHLORIDE
     Dosage: 300 MILLIGRAM, AM (MORNING)
  13. RISPERIDONE [Interacting]
     Active Substance: RISPERIDONE
     Indication: Obsessive-compulsive disorder
     Dosage: 12 MILLIGRAM, BID (TWICE A DAY)
     Dates: start: 202505
  14. RISPERIDONE [Interacting]
     Active Substance: RISPERIDONE
     Indication: Anxiety
     Dosage: 12 MILLIGRAM, BID (TWICE A DAY)
     Route: 065
     Dates: start: 202505
  15. RISPERIDONE [Interacting]
     Active Substance: RISPERIDONE
     Indication: Autism spectrum disorder
     Dosage: 12 MILLIGRAM, BID (TWICE A DAY)
     Route: 065
     Dates: start: 202505
  16. RISPERIDONE [Interacting]
     Active Substance: RISPERIDONE
     Dosage: 12 MILLIGRAM, BID (TWICE A DAY)
     Dates: start: 202505
  17. RISPERIDONE [Interacting]
     Active Substance: RISPERIDONE
     Indication: Obsessive-compulsive disorder
     Dosage: 18 MILLIGRAM, BID (TWICE A DAY)
  18. RISPERIDONE [Interacting]
     Active Substance: RISPERIDONE
     Indication: Anxiety
     Dosage: 18 MILLIGRAM, BID (TWICE A DAY)
     Route: 065
  19. RISPERIDONE [Interacting]
     Active Substance: RISPERIDONE
     Indication: Autism spectrum disorder
     Dosage: 18 MILLIGRAM, BID (TWICE A DAY)
     Route: 065
  20. RISPERIDONE [Interacting]
     Active Substance: RISPERIDONE
     Dosage: 18 MILLIGRAM, BID (TWICE A DAY)
  21. LITHIUM CARBONATE [Concomitant]
     Active Substance: LITHIUM CARBONATE
     Indication: Suicidal ideation
     Dosage: 900 MILLIGRAM, PM (AT NIGHT)
     Dates: start: 2024
  22. LITHIUM CARBONATE [Concomitant]
     Active Substance: LITHIUM CARBONATE
     Dosage: 900 MILLIGRAM, PM (AT NIGHT)
     Route: 065
     Dates: start: 2024
  23. LITHIUM CARBONATE [Concomitant]
     Active Substance: LITHIUM CARBONATE
     Dosage: 900 MILLIGRAM, PM (AT NIGHT)
     Route: 065
     Dates: start: 2024
  24. LITHIUM CARBONATE [Concomitant]
     Active Substance: LITHIUM CARBONATE
     Dosage: 900 MILLIGRAM, PM (AT NIGHT)
     Dates: start: 2024

REACTIONS (8)
  - Suicidal ideation [Not Recovered/Not Resolved]
  - Serotonin syndrome [Not Recovered/Not Resolved]
  - Weight increased [Unknown]
  - Drug interaction [Not Recovered/Not Resolved]
  - Drug ineffective [Not Recovered/Not Resolved]
  - Wrong dose [Recovered/Resolved]
  - Off label use [Not Recovered/Not Resolved]
  - Overdose [Not Recovered/Not Resolved]

NARRATIVE: CASE EVENT DATE: 20250501
